FAERS Safety Report 24856034 (Version 1)
Quarter: 2025Q1

REPORT INFORMATION
  Report Type: Report from Study
  Country: BY (occurrence: BY)
  Receive Date: 20250117
  Receipt Date: 20250117
  Transmission Date: 20250409
  Serious: Yes (Death)
  Sender: MYLAN
  Company Number: BY-MYLANLABS-2025M1004516

PATIENT
  Age: 53 Year
  Sex: Male
  Weight: 63 kg

DRUGS (10)
  1. PRETOMANID [Suspect]
     Active Substance: PRETOMANID
     Indication: Tuberculosis
     Dosage: 200 MILLIGRAM, QD (200 MG OD PO)
     Route: 048
     Dates: start: 20231221, end: 20240607
  2. BEDAQUILINE [Suspect]
     Active Substance: BEDAQUILINE
     Indication: Tuberculosis
     Dosage: 400 MILLIGRAM, QD (400 MG OD FOR 2 WEEKS, THEN 200 MG TIW PO)
     Route: 048
     Dates: start: 20231221
  3. BEDAQUILINE [Suspect]
     Active Substance: BEDAQUILINE
     Dosage: 200 MILLIGRAM, 3XW (400 MG OD FOR 2 WEEKS, THEN 200 MG TIW PO)
     Route: 048
     Dates: end: 20240607
  4. LINEZOLID [Suspect]
     Active Substance: LINEZOLID
     Indication: Tuberculosis
     Dosage: 600 MILLIGRAM, QD (600 MG OD PO FOR 112 DOSES THEN 300 MG OD)
     Route: 048
     Dates: start: 20231221
  5. LINEZOLID [Suspect]
     Active Substance: LINEZOLID
     Dosage: 300 MILLIGRAM, QD (600 MG OD PO FOR 112 DOSES THEN 300 MG OD)
     Route: 048
     Dates: end: 20240607
  6. CLOFAZIMINE [Suspect]
     Active Substance: CLOFAZIMINE
     Indication: Tuberculosis
     Dosage: 100 MILLIGRAM, QD (100 MG OD PO)
     Route: 048
     Dates: start: 20231221, end: 20240607
  7. FOLIC ACID [Concomitant]
     Active Substance: FOLIC ACID
     Indication: Anaemia
     Route: 048
     Dates: start: 20240216, end: 20240604
  8. NAPROXEN [Concomitant]
     Active Substance: NAPROXEN
     Indication: Neoplasm malignant
     Route: 048
     Dates: start: 20240425, end: 20240506
  9. TRAMADOL [Concomitant]
     Active Substance: TRAMADOL
     Indication: Neoplasm malignant
     Route: 048
     Dates: start: 20240422, end: 20240604
  10. ASPICARD [Concomitant]
     Indication: Myocardial ischaemia
     Route: 048
     Dates: start: 20231221

REACTIONS (1)
  - Lip and/or oral cavity cancer [Fatal]

NARRATIVE: CASE EVENT DATE: 20240929
